FAERS Safety Report 5492969-1 (Version None)
Quarter: 2007Q4

REPORT INFORMATION
  Report Type: 
  Country: None (occurrence: None)
  Receive Date: 20071023
  Receipt Date: 20071012
  Transmission Date: 20080405
  Serious: Yes (Hospitalization, Other)
  Sender: FDA-Public Use
  Company Number: GB-BRISTOL-MYERS SQUIBB COMPANY-13948443

PATIENT
  Age: 46 Year
  Sex: Female

DRUGS (4)
  1. IFOSFAMIDE [Suspect]
     Indication: LEIOMYOSARCOMA
     Route: 042
     Dates: start: 20070925, end: 20070925
  2. MESNA [Suspect]
     Route: 042
     Dates: start: 20070925, end: 20070925
  3. DOXORUBICIN HCL [Concomitant]
     Route: 042
     Dates: start: 20070925, end: 20070925
  4. METRONIDAZOLE [Concomitant]
     Route: 048
     Dates: start: 20070921

REACTIONS (4)
  - APHASIA [None]
  - CONVULSION [None]
  - ENCEPHALITIS [None]
  - OBSTRUCTIVE AIRWAYS DISORDER [None]
